FAERS Safety Report 9421780 (Version 1)
Quarter: 2013Q3

REPORT INFORMATION
  Report Type: Report from Study
  Country: IN (occurrence: IN)
  Receive Date: 20130726
  Receipt Date: 20130726
  Transmission Date: 20140515
  Serious: Yes (Other)
  Sender: FDA-Public Use
  Company Number: IN-ROCHE-1252657

PATIENT
  Sex: Male

DRUGS (2)
  1. BEVACIZUMAB [Suspect]
     Indication: RETINOPATHY OF PREMATURITY
     Route: 031
  2. BEVACIZUMAB [Suspect]
     Indication: OFF LABEL USE

REACTIONS (4)
  - Ocular vascular disorder [Unknown]
  - Retinal exudates [Recovered/Resolved]
  - Optic atrophy [Unknown]
  - Retinal degeneration [Unknown]
